FAERS Safety Report 7657619-4 (Version None)
Quarter: 2011Q3

REPORT INFORMATION
  Report Type: 
  Country: None (occurrence: None)
  Receive Date: 20110804
  Receipt Date: 20110725
  Transmission Date: 20111222
  Serious: Yes (Other)
  Sender: FDA-Public Use
  Company Number: JP-GENENTECH-322195

PATIENT

DRUGS (8)
  1. IFOSFAMIDE [Suspect]
     Indication: B-CELL LYMPHOMA
     Dosage: 1500 MG/M2, UNK
     Route: 042
  2. CYTARABINE [Suspect]
     Indication: B-CELL LYMPHOMA
     Dosage: 100 MG/M2, UNK
     Route: 042
  3. DEXAMETHASONE [Suspect]
     Indication: B-CELL LYMPHOMA
     Dosage: 40 MG, UNK
     Route: 042
  4. ACETAMINOPHEN [Concomitant]
     Indication: PREMEDICATION
     Dosage: UNK
     Route: 048
  5. RITUXIMAB [Suspect]
     Indication: B-CELL LYMPHOMA
     Dosage: 375 MG/M2, UNK
     Route: 042
  6. ETOPOSIDE [Suspect]
     Indication: B-CELL LYMPHOMA
     Dosage: 150 MG/M2, UNK
     Route: 042
  7. MESNA [Concomitant]
     Indication: PROPHYLAXIS URINARY TRACT INFECTION
     Dosage: 0
     Route: 042
  8. CHLORPHENIRAMINE MALEATE [Concomitant]
     Indication: PREMEDICATION
     Dosage: PREMEDICATION.
     Route: 048

REACTIONS (10)
  - PNEUMONIA [None]
  - HERPES ZOSTER [None]
  - TOXICITY TO VARIOUS AGENTS [None]
  - ANAEMIA [None]
  - DEVICE RELATED INFECTION [None]
  - NEUTROPENIA [None]
  - NAUSEA [None]
  - FEBRILE NEUTROPENIA [None]
  - PSEUDOMEMBRANOUS COLITIS [None]
  - THROMBOCYTOPENIA [None]
